FAERS Safety Report 9201613 (Version 1)
Quarter: 2013Q2

REPORT INFORMATION
  Report Type: Spontaneous
  Country: US (occurrence: US)
  Receive Date: 20130401
  Receipt Date: 20130401
  Transmission Date: 20140414
  Serious: No
  Sender: FDA-Public Use
  Company Number: US-B.I. PHARMACEUTICALS,INC./RIDGEFIELD-2013-BI-07793BP

PATIENT
  Age: 88 Year
  Sex: Female
  Weight: 68 kg

DRUGS (3)
  1. ZANTAC (RANITIDINE HYDROCHLORIDE) [Suspect]
     Indication: DYSPEPSIA
     Dosage: 150 MG
     Route: 048
  2. ZANTAC (RANITIDINE HYDROCHLORIDE) [Suspect]
     Dosage: 75 MG
     Route: 048
     Dates: start: 20130320
  3. TUMS [Concomitant]
     Indication: DYSPEPSIA
     Route: 048

REACTIONS (1)
  - Dyspepsia [Recovered/Resolved]
